FAERS Safety Report 10241623 (Version 1)
Quarter: 2014Q1

REPORT INFORMATION
  Report Type: Spontaneous
  Country: US (occurrence: None)
  Receive Date: 20140306
  Receipt Date: 20140306
  Transmission Date: 20141002
  Serious: Yes (Other)
  Sender: FDA-Public Use
  Company Number: 163-21880-13053657

PATIENT
  Age: 58 Year
  Sex: Female
  Weight: 92.99 kg

DRUGS (14)
  1. REVLIMID (LENALIDOMIDE) (25 MILLIGRAM, CAPSULES) [Suspect]
     Indication: PLASMA CELL MYELOMA
     Dosage: UNKNOWN
     Route: 048
     Dates: start: 20080301
  2. RELPAX (ELETRIPTAN HYDROBROMIDE) (TABLETS) [Concomitant]
  3. DEXAMETHASONE (UNKNOWN) [Concomitant]
  4. FUROSEMIDE (TALBETS) [Concomitant]
  5. ZYRTEC (CETIRIZINE HYDROCHLORIDE) (CHEWABLE TABLET) [Concomitant]
  6. ZOMETA (ZOLEDRONIC ACIDE (UNKNOWN) [Concomitant]
  7. METOPROLOL TARTRATE (METOPROLOL TARTRATE) (SPRAY (NOT INHALATION)) [Concomitant]
  8. FLONASE (FLUTICASONE PROPIANTE) (NASAL DROPS (INCLUDING NASAL SPRAY) [Concomitant]
  9. VENTOLIN HFA (SALBUTAMOL SULFATE) (UNKNOWN) [Concomitant]
  10. PRILOSEC (OMEPRAZOLE) (CAPSULES) [Concomitant]
  11. KLOR-CON (POTASSIUM CHLORIDE) (UNKNOWN) [Concomitant]
  12. LOSARTAN (UNKNOWN) [Concomitant]
  13. ALLOPURINOL (UNKNOWN) [Concomitant]
  14. ASPIRIN (ACETYLSALICYLIC ACID) (UNKNOWN) [Concomitant]

REACTIONS (1)
  - Multiple allergies [None]
